FAERS Safety Report 5991651-1 (Version None)
Quarter: 2008Q4

REPORT INFORMATION
  Report Type: 
  Country: None (occurrence: None)
  Receive Date: 20081211
  Receipt Date: 20080502
  Transmission Date: 20090506
  Serious: No
  Sender: FDA-Public Use
  Company Number: US-AMGEN-KDL277459

PATIENT
  Sex: Female

DRUGS (1)
  1. ENBREL [Suspect]
     Indication: PSORIASIS
     Route: 058
     Dates: start: 20080109

REACTIONS (9)
  - CONTUSION [None]
  - EXCORIATION [None]
  - FALL [None]
  - HEADACHE [None]
  - HYPOAESTHESIA [None]
  - INJECTION SITE IRRITATION [None]
  - INJECTION SITE PAIN [None]
  - PAIN [None]
  - SMEAR CERVIX ABNORMAL [None]
